FAERS Safety Report 18164188 (Version 2)
Quarter: 2020Q3

REPORT INFORMATION
  Report Type: Spontaneous
  Country: US (occurrence: US)
  Receive Date: 20200818
  Receipt Date: 20200828
  Transmission Date: 20201103
  Serious: Yes (Other)
  Sender: FDA-Public Use
  Company Number: US-TEVA-2020-US-1815205

PATIENT
  Age: 17 Year
  Sex: Female

DRUGS (1)
  1. EXOGENOUS TESTOSTERONE [Suspect]
     Active Substance: TESTOSTERONE
     Indication: TRANSGENDER HORMONAL THERAPY
     Route: 030

REACTIONS (2)
  - Hepatocellular carcinoma [Recovering/Resolving]
  - Weight decreased [Unknown]
